FAERS Safety Report 14151038 (Version 2)
Quarter: 2017Q4

REPORT INFORMATION
  Report Type: Spontaneous
  Country: US (occurrence: US)
  Receive Date: 20171102
  Receipt Date: 20171124
  Transmission Date: 20180321
  Serious: No
  Sender: FDA-Public Use
  Company Number: US-CELGENEUS-USA-20171009610

PATIENT
  Age: 44 Year
  Sex: Male

DRUGS (1)
  1. OTEZLA [Suspect]
     Active Substance: APREMILAST
     Indication: PSORIASIS
     Dosage: 60 MILLIGRAM
     Route: 048
     Dates: start: 20170914, end: 20170930

REACTIONS (4)
  - Arthralgia [Recovered/Resolved]
  - Pain in extremity [Unknown]
  - Limb discomfort [Unknown]
  - Gait inability [Unknown]

NARRATIVE: CASE EVENT DATE: 2017
